FAERS Safety Report 24651137 (Version 2)
Quarter: 2024Q4

REPORT INFORMATION
  Report Type: Report from Study
  Country: US (occurrence: US)
  Receive Date: 20241122
  Receipt Date: 20241128
  Transmission Date: 20250115
  Serious: Yes (Other)
  Sender: UCB
  Company Number: US-UCBSA-2024060169

PATIENT
  Age: 6 Year
  Sex: Male
  Weight: 16.3 kg

DRUGS (2)
  1. FINTEPLA [Suspect]
     Active Substance: FENFLURAMINE
     Indication: Product used for unknown indication
     Dosage: 13.2 MILLIGRAM, ONCE DAILY (QD)
     Dates: start: 20231018
  2. FINTEPLA [Suspect]
     Active Substance: FENFLURAMINE
     Dosage: 2.8 ML BID FOR 7 DAYS THEN 2.5 ML BID FOR 7 DAYS THEN 2.3 ML BID FR 7 DYAS THEN 2 ML BID THERAFTER

REACTIONS (5)
  - Extrasystoles [Not Recovered/Not Resolved]
  - Aortic valve incompetence [Not Recovered/Not Resolved]
  - Mitral valve incompetence [Not Recovered/Not Resolved]
  - Pulmonary valve incompetence [Not Recovered/Not Resolved]
  - Tricuspid valve incompetence [Not Recovered/Not Resolved]

NARRATIVE: CASE EVENT DATE: 20241108
